FAERS Safety Report 8509063-5 (Version None)
Quarter: 2012Q3

REPORT INFORMATION
  Report Type: 
  Country: None (occurrence: None)
  Receive Date: 20120703
  Receipt Date: 20120619
  Transmission Date: 20120928
  Serious: Yes (Death, Hospitalization)
  Sender: FDA-Public Use
  Company Number: IT-2012-2388

PATIENT
  Age: 64 Year
  Sex: Female

DRUGS (4)
  1. NAVELBINE [Suspect]
     Indication: LUNG NEOPLASM MALIGNANT
     Dosage: 37.5 MG UNK IV
     Route: 042
     Dates: start: 20110608, end: 20110615
  2. GLUTATHIONE SODIUM [Concomitant]
  3. CISPLATIN [Suspect]
     Indication: LUNG NEOPLASM MALIGNANT
     Dosage: 40 MG UNK IV
     Route: 042
     Dates: start: 20110608, end: 20110609
  4. DESAMETASONE FOSF [Concomitant]

REACTIONS (3)
  - RED BLOOD CELL SEDIMENTATION RATE INCREASED [None]
  - FEBRILE NEUTROPENIA [None]
  - DIARRHOEA [None]
